FAERS Safety Report 6926898-0 (Version None)
Quarter: 2010Q3

REPORT INFORMATION
  Report Type: 
  Country: None (occurrence: None)
  Receive Date: 20100816
  Receipt Date: 20100625
  Transmission Date: 20110219
  Serious: No
  Sender: FDA-Public Use
  Company Number: US-ABBOTT-10P-163-0654396-00

PATIENT
  Sex: Female

DRUGS (5)
  1. SIMCOR [Suspect]
     Indication: BLOOD CHOLESTEROL INCREASED
     Dosage: 500/20 MILLIGRAMS
     Dates: start: 20091201, end: 20100301
  2. SIMCOR [Suspect]
     Dosage: 1000/20 MILLIGRAMS
     Dates: start: 20100301, end: 20100601
  3. SIMCOR [Suspect]
     Dosage: 1500/20 MILLIGRAMS
     Dates: start: 20100601
  4. SYNTHROID [Concomitant]
     Indication: PRODUCT USED FOR UNKNOWN INDICATION
  5. BENICAR [Concomitant]
     Indication: PRODUCT USED FOR UNKNOWN INDICATION
     Dates: start: 20100301

REACTIONS (2)
  - RASH [None]
  - SKIN EXFOLIATION [None]
